FAERS Safety Report 6489103-8 (Version None)
Quarter: 2009Q4

REPORT INFORMATION
  Report Type: 
  Country: None (occurrence: None)
  Receive Date: 20091207
  Receipt Date: 20091123
  Transmission Date: 20100525
  Serious: Yes (Hospitalization, Other)
  Sender: FDA-Public Use
  Company Number: 2009AM000724

PATIENT
  Age: 32 Year
  Sex: Female
  Weight: 90.2658 kg

DRUGS (9)
  1. SYMLINPEN 120 (PRAMLINTIDE ACETATE) PEN-INJECTION (1.0 MG/ML) [Suspect]
     Indication: TYPE 1 DIABETES MELLITUS
     Dosage: 60 MCG;QD;SC ; 120 MCG;TID;SC ; 50 MCG;TID;SC
     Route: 058
     Dates: start: 20080101, end: 20091101
  2. SYMLINPEN 120 (PRAMLINTIDE ACETATE) PEN-INJECTION (1.0 MG/ML) [Suspect]
     Indication: TYPE 1 DIABETES MELLITUS
     Dosage: 60 MCG;QD;SC ; 120 MCG;TID;SC ; 50 MCG;TID;SC
     Route: 058
     Dates: start: 20080101
  3. SYMLINPEN 120 (PRAMLINTIDE ACETATE) PEN-INJECTION (1.0 MG/ML) [Suspect]
     Indication: TYPE 1 DIABETES MELLITUS
     Dosage: 60 MCG;QD;SC ; 120 MCG;TID;SC ; 50 MCG;TID;SC
     Route: 058
     Dates: start: 20091120
  4. SYMLIN [Suspect]
     Indication: TYPE 1 DIABETES MELLITUS
     Dosage: 60 MCG;TID;SC ; 30 MCG;TID;SC
     Route: 058
     Dates: start: 20070101, end: 20070101
  5. SYMLIN [Suspect]
     Indication: TYPE 1 DIABETES MELLITUS
     Dosage: 60 MCG;TID;SC ; 30 MCG;TID;SC
     Route: 058
     Dates: start: 20070101, end: 20080101
  6. NOVOLOG [Concomitant]
  7. LANTUS [Concomitant]
  8. PREDNISONE [Concomitant]
  9. PREV MEDS [Concomitant]

REACTIONS (6)
  - ABDOMINAL DISTENSION [None]
  - CLOSTRIDIAL INFECTION [None]
  - DECREASED APPETITE [None]
  - IDIOPATHIC THROMBOCYTOPENIC PURPURA [None]
  - INCREASED APPETITE [None]
  - WEIGHT INCREASED [None]
